FAERS Safety Report 20077093 (Version 1)
Quarter: 2021Q4

REPORT INFORMATION
  Report Type: Spontaneous
  Country: US (occurrence: None)
  Receive Date: 20211116
  Receipt Date: 20211116
  Transmission Date: 20220303
  Serious: Yes (Hospitalization)
  Sender: FDA-Public Use
  Company Number: None

PATIENT
  Sex: Male
  Weight: 87.9 kg

DRUGS (2)
  1. IPILIMUMAB [Suspect]
     Active Substance: IPILIMUMAB
     Dates: end: 20211021
  2. NIVOLUMAB [Suspect]
     Active Substance: NIVOLUMAB
     Dates: end: 20211021

REACTIONS (7)
  - Cerebrovascular accident [None]
  - Speech disorder [None]
  - Heart rate increased [None]
  - Cerebral mass effect [None]
  - Cerebral haematoma [None]
  - Brain oedema [None]
  - Fracture [None]

NARRATIVE: CASE EVENT DATE: 20211109
